FAERS Safety Report 18918879 (Version 2)
Quarter: 2021Q1

REPORT INFORMATION
  Report Type: Report from Study
  Country: US (occurrence: US)
  Receive Date: 20210220
  Receipt Date: 20210323
  Transmission Date: 20210420
  Serious: Yes (Hospitalization)
  Sender: FDA-Public Use
  Company Number: US-EMD SERONO-9206813

PATIENT
  Age: 44 Year
  Sex: Female

DRUGS (3)
  1. REBIF [Suspect]
     Active Substance: INTERFERON BETA-1A
     Indication: PRODUCT USED FOR UNKNOWN INDICATION
     Dosage: REBIF PREFILLED SYRINGE
     Route: 058
     Dates: start: 20201115
  2. REBIF [Suspect]
     Active Substance: INTERFERON BETA-1A
     Dosage: REBIF PREFILLED SYRINGE
     Route: 058
     Dates: start: 2020
  3. REBIF [Suspect]
     Active Substance: INTERFERON BETA-1A
     Dosage: REBIF PREFILLED SYRINGE
     Route: 058
     Dates: start: 20201209, end: 20201218

REACTIONS (12)
  - Eye disorder [Unknown]
  - Menometrorrhagia [Recovering/Resolving]
  - Adverse drug reaction [Recovering/Resolving]
  - Mobility decreased [Unknown]
  - Dysphoria [Recovering/Resolving]
  - Pyrexia [Unknown]
  - Renal pain [Unknown]
  - Dysphemia [Unknown]
  - Asthenia [Unknown]
  - Malaise [Unknown]
  - Catatonia [Recovering/Resolving]
  - Coordination abnormal [Unknown]

NARRATIVE: CASE EVENT DATE: 2020
